FAERS Safety Report 20015596 (Version 1)
Quarter: 2021Q4

REPORT INFORMATION
  Report Type: Spontaneous
  Country: US (occurrence: None)
  Receive Date: 20211029
  Receipt Date: 20211029
  Transmission Date: 20220303
  Serious: Yes (Hospitalization)
  Sender: FDA-Public Use
  Company Number: None

PATIENT
  Sex: Female

DRUGS (9)
  1. ERIVEDGE [Suspect]
     Active Substance: VISMODEGIB
     Indication: Basal cell carcinoma
     Dosage: FREQUENCY : DAILY;?
     Route: 048
     Dates: start: 20181206, end: 202110
  2. ERIVEDGE [Suspect]
     Active Substance: VISMODEGIB
     Dosage: FREQUENCY : DAILY;?
     Route: 048
  3. HUMULIN R INJ [Concomitant]
  4. LANTUS INJ [Concomitant]
  5. MULTI VITAMIN TAB MINERALS [Concomitant]
  6. SIROLIMUS [Concomitant]
     Active Substance: SIROLIMUS
  7. SORIATANE CAP [Concomitant]
  8. TACROLIMUS [Concomitant]
     Active Substance: TACROLIMUS
  9. VITAMIN D3 CAP [Concomitant]

REACTIONS (2)
  - Sepsis [None]
  - Therapy cessation [None]
